FAERS Safety Report 9862233 (Version 1)
Quarter: 2014Q1

REPORT INFORMATION
  Report Type: Spontaneous
  Country: US (occurrence: US)
  Receive Date: 20140203
  Receipt Date: 20140203
  Transmission Date: 20141002
  Serious: No
  Sender: FDA-Public Use
  Company Number: US-OPTIMER-20130417

PATIENT
  Age: 44 Year
  Sex: Female
  Weight: 54.42 kg

DRUGS (2)
  1. DIFICID [Suspect]
     Indication: CLOSTRIDIAL INFECTION
     Dosage: 200 MG, BID
     Route: 048
     Dates: start: 20131005, end: 20131014
  2. VANCOMYCIN [Concomitant]
     Indication: CLOSTRIDIAL INFECTION
     Dosage: 250 MG, QID

REACTIONS (1)
  - Drug ineffective [Not Recovered/Not Resolved]
